FAERS Safety Report 5837621-5 (Version None)
Quarter: 2008Q3

REPORT INFORMATION
  Report Type: 
  Country: None (occurrence: None)
  Receive Date: 20080807
  Receipt Date: 20080729
  Transmission Date: 20090109
  Serious: Yes (Death)
  Sender: FDA-Public Use
  Company Number: FR-PFIZER INC-2008064152

PATIENT
  Sex: Female

DRUGS (7)
  1. XALATAN [Suspect]
     Route: 047
  2. AMIODARONE HCL [Suspect]
     Dosage: TEXT:1DF
     Route: 048
     Dates: start: 20050801, end: 20080613
  3. PREVISCAN [Suspect]
     Route: 048
  4. ECAZIDE [Suspect]
     Route: 048
  5. LEVOTHYROX [Suspect]
     Route: 048
  6. IMOVANE [Suspect]
     Route: 048
  7. HYPERIUM [Suspect]
     Route: 048

REACTIONS (1)
  - LUNG DISORDER [None]
